FAERS Safety Report 4682669-X (Version None)
Quarter: 2005Q2

REPORT INFORMATION
  Report Type: 
  Country: None (occurrence: None)
  Receive Date: 20050606
  Receipt Date: 20050526
  Transmission Date: 20051028
  Serious: Yes (Disabling)
  Sender: FDA-Public Use
  Company Number: FR-GLAXOSMITHKLINE-B0382577A

PATIENT
  Age: 14 Month
  Sex: Male
  Weight: 12 kg

DRUGS (3)
  1. ZIDOVUDINE [Suspect]
     Indication: ANTIVIRAL PROPHYLAXIS
     Route: 048
     Dates: start: 19940701, end: 19940101
  2. ZIDOVUDINE [Suspect]
     Dates: start: 19940701, end: 19940701
  3. ZIDOVUDINE [Suspect]
     Indication: HIV INFECTION
     Dates: start: 19940525, end: 19940708

REACTIONS (3)
  - DRUG EXPOSURE DURING PREGNANCY [None]
  - RETINOBLASTOMA BILATERAL [None]
  - STRABISMUS [None]
